FAERS Safety Report 19955620 (Version 1)
Quarter: 2021Q4

REPORT INFORMATION
  Report Type: Spontaneous
  Country: US (occurrence: US)
  Receive Date: 20211013
  Receipt Date: 20211013
  Transmission Date: 20220304
  Serious: No
  Sender: FDA-Public Use
  Company Number: US-BOEHRINGERINGELHEIM-2021-BI-132418

PATIENT

DRUGS (2)
  1. JARDIANCE [Suspect]
     Active Substance: EMPAGLIFLOZIN
     Indication: Product used for unknown indication
  2. SOLIQUA 100/33 [Suspect]
     Active Substance: INSULIN GLARGINE\LIXISENATIDE
     Indication: Product used for unknown indication

REACTIONS (1)
  - Fungal infection [Unknown]
